FAERS Safety Report 8535136-7 (Version None)
Quarter: 2012Q3

REPORT INFORMATION
  Report Type: 
  Country: None (occurrence: None)
  Receive Date: 20120724
  Receipt Date: 20120718
  Transmission Date: 20120928
  Serious: Yes (Other)
  Sender: FDA-Public Use
  Company Number: GB-PFIZER INC-2012174447

PATIENT
  Age: 59 Year
  Sex: Female

DRUGS (2)
  1. LYRICA [Suspect]
     Dosage: 50 MG, 2X/DAY
  2. LYRICA [Suspect]
     Dosage: 25 MG, 2X/DAY

REACTIONS (5)
  - HYPERTENSIVE CRISIS [None]
  - HEADACHE [None]
  - MIDDLE INSOMNIA [None]
  - DIZZINESS [None]
  - VOMITING [None]
